FAERS Safety Report 10586269 (Version 1)
Quarter: 2014Q4

REPORT INFORMATION
  Report Type: Spontaneous
  Country: DE (occurrence: DE)
  Receive Date: 20141117
  Receipt Date: 20141117
  Transmission Date: 20150529
  Serious: Yes (Hospitalization)
  Sender: FDA-Public Use
  Company Number: DE-ACCORD-026963

PATIENT
  Age: 7 Year
  Sex: Female

DRUGS (5)
  1. DAUNORUBICIN [Concomitant]
     Active Substance: DAUNORUBICIN
     Indication: ACUTE LYMPHOCYTIC LEUKAEMIA
     Route: 042
  2. VINCRISTINE [Concomitant]
     Active Substance: VINCRISTINE
     Indication: ACUTE LYMPHOCYTIC LEUKAEMIA
     Route: 042
  3. METHOTREXATE [Suspect]
     Active Substance: METHOTREXATE
     Indication: ACUTE LYMPHOCYTIC LEUKAEMIA
     Dosage: THIRD INTRATHECAL?APPLICATION
     Route: 037
  4. NITROUS OXIDE. [Interacting]
     Active Substance: NITROUS OXIDE
     Indication: SEDATION
  5. METHYLPREDNISOLONE. [Concomitant]
     Active Substance: METHYLPREDNISOLONE
     Indication: ACUTE LYMPHOCYTIC LEUKAEMIA
     Dosage: METHYLPREDNISOLONE P.O.[60 MG/M2/D FOR 28 DAYS]
     Route: 048

REACTIONS (4)
  - Neurotoxicity [Recovered/Resolved with Sequelae]
  - Neutropenia [Unknown]
  - Drug interaction [Unknown]
  - Toxicity to various agents [Unknown]
